FAERS Safety Report 5886774-1 (Version None)
Quarter: 2008Q3

REPORT INFORMATION
  Report Type: 
  Country: None (occurrence: None)
  Receive Date: 20080917
  Receipt Date: 20080829
  Transmission Date: 20090109
  Serious: No
  Sender: FDA-Public Use
  Company Number: US-JNJFOC-20080900385

PATIENT
  Age: 26 Year
  Sex: Male

DRUGS (5)
  1. INVEGA [Suspect]
     Route: 048
  2. INVEGA [Suspect]
     Route: 048
  3. INVEGA [Suspect]
     Indication: DRUG USE FOR UNKNOWN INDICATION
     Route: 048
  4. ALBUTEROL [Concomitant]
  5. ATIVAN [Concomitant]

REACTIONS (2)
  - CHEST PAIN [None]
  - HEART RATE INCREASED [None]
